FAERS Safety Report 18279139 (Version 6)
Quarter: 2020Q4

REPORT INFORMATION
  Report Type: Spontaneous
  Country: US (occurrence: US)
  Receive Date: 20200917
  Receipt Date: 20201221
  Transmission Date: 20210113
  Serious: Yes (Hospitalization, Other)
  Sender: FDA-Public Use
  Company Number: US-PFIZER INC-2020356581

PATIENT
  Age: 77 Year
  Sex: Female
  Weight: 72.56 kg

DRUGS (4)
  1. IBRANCE [Suspect]
     Active Substance: PALBOCICLIB
     Indication: BREAST CANCER FEMALE
     Dosage: 250 MG, CYCLIC (28 DAYS CYCLE AND SHE TAKES IT FOR 21 DAYS)
     Route: 048
     Dates: start: 201803
  2. LEVOTHYROXINE. [Concomitant]
     Active Substance: LEVOTHYROXINE
     Dosage: UNK
  3. METFORMIN [Concomitant]
     Active Substance: METFORMIN HYDROCHLORIDE
     Dosage: UNK
  4. LETROZOLE. [Concomitant]
     Active Substance: LETROZOLE
     Dosage: UNK

REACTIONS (13)
  - Trichorrhexis [Unknown]
  - Head injury [Unknown]
  - Thrombosis [Unknown]
  - Wrong strength [Unknown]
  - Alopecia [Unknown]
  - Hormone level abnormal [Unknown]
  - Drug dependence [Unknown]
  - Immunodeficiency [Unknown]
  - Pain [Recovered/Resolved]
  - Pulmonary artery aneurysm [Unknown]
  - Skull fracture [Unknown]
  - Haemorrhage [Unknown]
  - Weight decreased [Unknown]

NARRATIVE: CASE EVENT DATE: 202009
